FAERS Safety Report 8776416 (Version 1)
Quarter: 2012Q4

REPORT INFORMATION
  Report Type: 
  Country: US (occurrence: US)
  Receive Date: 20120910
  Receipt Date: 20120910
  Transmission Date: 20130627
  Serious: Yes (Hospitalization)
  Sender: FDA-Public Use
  Company Number: US-JNJFOC-20120815208

PATIENT
  Sex: Male
  Weight: 94.8 kg

DRUGS (3)
  1. INVEGA [Suspect]
     Indication: BIPOLAR DISORDER
     Dosage: took for a week
     Route: 048
     Dates: start: 201208, end: 201208
  2. INVEGA SUSTENNA [Suspect]
     Indication: BIPOLAR DISORDER
     Dosage: may be 276 mg
     Route: 030
     Dates: start: 201208, end: 201208
  3. LISINOPRIL [Concomitant]
     Indication: HYPERTENSION
     Route: 048
     Dates: start: 2010

REACTIONS (3)
  - Adverse event [Unknown]
  - Tremor [Recovering/Resolving]
  - Transient ischaemic attack [Recovered/Resolved]
